FAERS Safety Report 4619137-7 (Version None)
Quarter: 2005Q1

REPORT INFORMATION
  Report Type: 
  Country: None (occurrence: None)
  Receive Date: 20050325
  Receipt Date: 20050302
  Transmission Date: 20050727
  Serious: Yes (Other)
  Sender: FDA-Public Use
  Company Number: US-GLAXOSMITHKLINE-A0547968A

PATIENT
  Age: 43 Year
  Sex: Female

DRUGS (4)
  1. LAMICTAL [Suspect]
     Indication: DRUG USE FOR UNKNOWN INDICATION
     Dosage: 75MG PER DAY
     Route: 048
     Dates: start: 20040902, end: 20041001
  2. WELLBUTRIN [Concomitant]
     Dosage: 300MG PER DAY
     Route: 048
     Dates: start: 20040826
  3. TOPAMAX [Concomitant]
     Dosage: 100MG PER DAY
     Route: 048
     Dates: start: 20040819
  4. ZOLOFT [Concomitant]
     Dosage: 150MG PER DAY
     Route: 048
     Dates: start: 20040819

REACTIONS (5)
  - HYPOAESTHESIA ORAL [None]
  - PARAESTHESIA ORAL [None]
  - PRURITUS [None]
  - RASH MACULO-PAPULAR [None]
  - SWELLING FACE [None]
